FAERS Safety Report 4385920-9 (Version None)
Quarter: 2004Q2

REPORT INFORMATION
  Report Type: 
  Country: None (occurrence: None)
  Receive Date: 20040622
  Receipt Date: 20040611
  Transmission Date: 20050107
  Serious: No
  Sender: FDA-Public Use
  Company Number: 2004UW12254

PATIENT
  Sex: Female

DRUGS (2)
  1. SEROQUEL [Suspect]
     Dosage: 200 MG TID PO
     Route: 048
  2. REMERON       SCH [Concomitant]

REACTIONS (2)
  - EYE DISORDER [None]
  - PARALYSIS [None]
